FAERS Safety Report 20586293 (Version 1)
Quarter: 2022Q1

REPORT INFORMATION
  Report Type: Report from Study
  Country: US (occurrence: US)
  Receive Date: 20220313
  Receipt Date: 20220313
  Transmission Date: 20220424
  Serious: Yes (Other)
  Sender: FDA-Public Use
  Company Number: US-TEVA-2022-US-2015833

PATIENT
  Sex: Female

DRUGS (1)
  1. SYNRIBO [Suspect]
     Active Substance: OMACETAXINE MEPESUCCINATE
     Indication: Chronic myeloid leukaemia
     Dosage: 2.6 MG
     Route: 058
     Dates: start: 202112

REACTIONS (1)
  - Cytopenia [Unknown]
